FAERS Safety Report 10862800 (Version 1)
Quarter: 2015Q1

REPORT INFORMATION
  Report Type: Spontaneous
  Country: US (occurrence: None)
  Receive Date: 20150219
  Receipt Date: 20150219
  Transmission Date: 20150721
  Serious: Yes (Hospitalization, Other)
  Sender: FDA-Public Use
  Company Number: US-ZYDUS-006729

PATIENT
  Age: 53 Year
  Sex: Male

DRUGS (2)
  1. SODIUM VALPROATE (SODIUM VALPROATE) (500-MG MILLGRAMS) [Suspect]
     Active Substance: VALPROATE SODIUM
     Route: 048
  2. BENZATROPINE [Suspect]
     Active Substance: BENZTROPINE
     Route: 048

REACTIONS (6)
  - Blood pressure systolic increased [None]
  - Suicide attempt [None]
  - Intentional overdose [None]
  - Nephrogenic diabetes insipidus [None]
  - Agitation [None]
  - Lethargy [None]
